FAERS Safety Report 10415050 (Version 2)
Quarter: 2015Q1

REPORT INFORMATION
  Report Type: Report from Study
  Country: US (occurrence: US)
  Receive Date: 20140828
  Receipt Date: 20150219
  Transmission Date: 20150720
  Serious: Yes (Other)
  Sender: FDA-Public Use
  Company Number: US-AMGEN-USASP2014064652

PATIENT
  Sex: Female

DRUGS (2)
  1. ENBREL [Suspect]
     Active Substance: ETANERCEPT
     Indication: EXPOSURE DURING PREGNANCY
     Dosage: 50 MG, QWK
     Route: 064
     Dates: start: 20120923, end: 201304
  2. METOPROLOL [Concomitant]
     Active Substance: METOPROLOL
     Indication: HYPERTENSION
     Dosage: 50 MG, QD
     Route: 064
     Dates: start: 2007, end: 201308

REACTIONS (7)
  - Rash [Unknown]
  - Skin discolouration [Unknown]
  - Skin haemorrhage [Unknown]
  - Dacryostenosis acquired [Unknown]
  - Skin mass [Unknown]
  - Haemangioma congenital [Unknown]
  - Contusion [Unknown]
